FAERS Safety Report 15706876 (Version 1)
Quarter: 2018Q4

REPORT INFORMATION
  Report Type: Report from Study
  Country: CA (occurrence: CA)
  Receive Date: 20181210
  Receipt Date: 20181210
  Transmission Date: 20190205
  Serious: Yes (Other)
  Sender: FDA-Public Use
  Company Number: CA-HLSUS-2018-CA-001782

PATIENT
  Sex: Female

DRUGS (1)
  1. CLOZARIL [Suspect]
     Active Substance: CLOZAPINE
     Route: 048
     Dates: start: 20181116, end: 20181123

REACTIONS (5)
  - Muscle rigidity [Unknown]
  - Hypertonia [Unknown]
  - Joint stiffness [Unknown]
  - Mobility decreased [Unknown]
  - Product dose omission [Unknown]
